FAERS Safety Report 21054681 (Version 4)
Quarter: 2022Q3

REPORT INFORMATION
  Report Type: Report from Study
  Country: US (occurrence: US)
  Receive Date: 20220707
  Receipt Date: 20220824
  Transmission Date: 20221027
  Serious: No
  Sender: FDA-Public Use
  Company Number: US-NOVARTISTESTPH-NVSC2022US155090

PATIENT
  Sex: Female

DRUGS (2)
  1. PIQRAY [Suspect]
     Active Substance: ALPELISIB
     Indication: Product used for unknown indication
     Dosage: UNK
     Route: 048
     Dates: start: 20220525
  2. PIQRAY [Suspect]
     Active Substance: ALPELISIB
     Dosage: 250 MG (DOSE REDUCED)
     Route: 065

REACTIONS (7)
  - Mouth swelling [Recovering/Resolving]
  - Oral pain [Unknown]
  - Blister [Unknown]
  - Erythema [Unknown]
  - Lip swelling [Recovering/Resolving]
  - Rash [Recovering/Resolving]
  - Urinary tract infection [Unknown]
